FAERS Safety Report 4407203-0 (Version None)
Quarter: 2004Q3

REPORT INFORMATION
  Report Type: 
  Country: None (occurrence: None)
  Receive Date: 20040721
  Receipt Date: 20040615
  Transmission Date: 20050211
  Serious: Yes (Hospitalization)
  Sender: FDA-Public Use
  Company Number: WAES 0406USA01506

PATIENT
  Age: 57 Year
  Sex: Male
  Weight: 73.4827 kg

DRUGS (11)
  1. DECADRON [Suspect]
     Indication: MULTIPLE MYELOMA
     Dosage: 40 MG/QID/PO
     Route: 048
     Dates: start: 20030806, end: 20030806
  2. DOXIL [Suspect]
     Indication: MULTIPLE MYELOMA
     Dosage: 40 MG/M[2]/IV
     Route: 042
     Dates: start: 20030806, end: 20030806
  3. DOXIL [Suspect]
     Indication: MULTIPLE MYELOMA
     Dosage: 40 MG/M[2]/IV
     Route: 042
     Dates: start: 20030903, end: 20030903
  4. VINCRISTINE SULFATE [Suspect]
     Indication: MULTIPLE MYELOMA
     Dosage: 1.4 MG/M [2], IV
     Route: 042
     Dates: start: 20030806, end: 20030806
  5. VINCRISTINE SULFATE [Suspect]
     Indication: MULTIPLE MYELOMA
     Dosage: 1.4 MG/M [2], IV
     Route: 042
     Dates: start: 20030903, end: 20030903
  6. KYTRIL [Concomitant]
  7. MS CONTIN [Concomitant]
  8. PEPCID [Concomitant]
  9. ZOMETA [Concomitant]
  10. ARANESP [Concomitant]
  11. BENADRYL [Concomitant]

REACTIONS (5)
  - BLOOD PRESSURE SYSTOLIC INCREASED [None]
  - HAEMATOCRIT DECREASED [None]
  - HAEMOGLOBIN DECREASED [None]
  - HEART RATE INCREASED [None]
  - PNEUMONIA STAPHYLOCOCCAL [None]
